FAERS Safety Report 5273578-6 (Version None)
Quarter: 2007Q1

REPORT INFORMATION
  Report Type: 
  Country: None (occurrence: None)
  Receive Date: 20070320
  Receipt Date: 20070305
  Transmission Date: 20070707
  Serious: Yes (Death)
  Sender: FDA-Public Use
  Company Number: 15852

PATIENT
  Age: 16 Year
  Sex: Female

DRUGS (7)
  1. METHOTREXATE [Suspect]
     Indication: BRAIN NEOPLASM MALIGNANT
  2. VINCRISTINE [Suspect]
     Indication: BRAIN NEOPLASM MALIGNANT
  3. CYTARABINE [Suspect]
     Indication: BRAIN NEOPLASM MALIGNANT
  4. ETOPOSIDE /00511902/ [Suspect]
     Indication: BRAIN NEOPLASM MALIGNANT
  5. CISPLATIN [Suspect]
     Indication: BRAIN NEOPLASM MALIGNANT
  6. CARBOPLATIN [Suspect]
     Indication: BRAIN NEOPLASM MALIGNANT
  7. CYCLOPHOSPHAMIDE [Suspect]
     Indication: BRAIN NEOPLASM MALIGNANT

REACTIONS (2)
  - CYTOLOGY ABNORMAL [None]
  - GLIOMA [None]
